FAERS Safety Report 5395996-8 (Version None)
Quarter: 2007Q3

REPORT INFORMATION
  Report Type: 
  Country: None (occurrence: None)
  Receive Date: 20070724
  Receipt Date: 20070712
  Transmission Date: 20080115
  Serious: Yes (Hospitalization)
  Sender: FDA-Public Use
  Company Number: US-PFIZER INC-2007058268

PATIENT
  Sex: Male
  Weight: 105.2 kg

DRUGS (4)
  1. BEXTRA [Suspect]
     Indication: ARTHRITIS
     Dates: start: 20020101, end: 20031001
  2. BEXTRA [Suspect]
     Indication: PAIN
  3. ASPIRIN [Concomitant]
  4. VIOXX [Concomitant]

REACTIONS (1)
  - CEREBROVASCULAR ACCIDENT [None]
